FAERS Safety Report 17659064 (Version 3)
Quarter: 2020Q2

REPORT INFORMATION
  Report Type: Spontaneous
  Country: TH (occurrence: TH)
  Receive Date: 20200413
  Receipt Date: 20200427
  Transmission Date: 20200713
  Serious: Yes (Death, Other)
  Sender: FDA-Public Use
  Company Number: TH-ROCHE-2577353

PATIENT
  Age: 44 Year
  Sex: Male
  Weight: 80 kg

DRUGS (11)
  1. RITONAVIR. [Suspect]
     Active Substance: RITONAVIR
     Indication: CORONAVIRUS INFECTION
     Route: 065
     Dates: start: 20200325
  2. ENOXAPARIN [Suspect]
     Active Substance: ENOXAPARIN
     Indication: RENAL REPLACEMENT THERAPY
     Route: 065
  3. AZITHROMYCIN ANHYDROUS. [Suspect]
     Active Substance: AZITHROMYCIN ANHYDROUS
     Indication: CORONAVIRUS INFECTION
     Route: 042
     Dates: start: 20200328
  4. VANCOMYCIN [Suspect]
     Active Substance: VANCOMYCIN
     Indication: BACTERIAL INFECTION
     Route: 065
     Dates: start: 20200329
  5. LOPINAVIR [Suspect]
     Active Substance: LOPINAVIR
     Indication: CORONAVIRUS INFECTION
     Route: 065
     Dates: start: 20200325
  6. PIPERACILLIN. [Suspect]
     Active Substance: PIPERACILLIN SODIUM
     Indication: BACTERIAL INFECTION
     Route: 065
     Dates: start: 20200329
  7. ACTEMRA [Suspect]
     Active Substance: TOCILIZUMAB
     Indication: CORONAVIRUS INFECTION
     Dosage: 8 MG/KG/DAY
     Route: 042
     Dates: start: 20200329
  8. HYDROXYCHLOROQUINE [Suspect]
     Active Substance: HYDROXYCHLOROQUINE
     Indication: CORONAVIRUS INFECTION
     Route: 065
     Dates: start: 20200325
  9. TAZOBACTAM [Suspect]
     Active Substance: TAZOBACTAM
     Indication: BACTERIAL INFECTION
     Route: 065
     Dates: start: 20200329
  10. FAVIPIRAVIR [Suspect]
     Active Substance: FAVIPIRAVIR
     Indication: CORONAVIRUS INFECTION
     Route: 065
     Dates: start: 20200326
  11. DARUNAVIR [Suspect]
     Active Substance: DARUNAVIR
     Indication: CORONAVIRUS INFECTION
     Route: 065
     Dates: start: 20200328

REACTIONS (7)
  - Blood creatinine increased [Unknown]
  - Intentional product use issue [Unknown]
  - Injection site extravasation [Unknown]
  - Renal failure [Unknown]
  - Off label use [Unknown]
  - Proteinuria [Unknown]
  - Cerebral haemorrhage [Fatal]

NARRATIVE: CASE EVENT DATE: 20200329
